FAERS Safety Report 15942042 (Version 4)
Quarter: 2019Q4

REPORT INFORMATION
  Report Type: Spontaneous
  Country: US (occurrence: US)
  Receive Date: 20190209
  Receipt Date: 20191018
  Transmission Date: 20200122
  Serious: Yes (Other)
  Sender: FDA-Public Use
  Company Number: US-ASTRAZENECA-2018SF26121

PATIENT
  Age: 32475 Day
  Sex: Female
  Weight: 44.5 kg

DRUGS (33)
  1. PRAVASTATIN. [Concomitant]
     Active Substance: PRAVASTATIN
  2. ZANTAC [Concomitant]
     Active Substance: RANITIDINE HYDROCHLORIDE
     Route: 065
     Dates: start: 2017
  3. VITAMIN D3 [Concomitant]
     Active Substance: CHOLECALCIFEROL
  4. CALCIUM [Concomitant]
     Active Substance: CALCIUM
     Indication: BONE DISORDER
     Dates: start: 2000
  5. VITAMIN B12 [Concomitant]
     Active Substance: CYANOCOBALAMIN
     Indication: RED BLOOD CELL COUNT DECREASED
     Dates: start: 2017
  6. PREVACID [Suspect]
     Active Substance: LANSOPRAZOLE
     Route: 065
     Dates: start: 19760101, end: 20160630
  7. GABAPENTIN. [Concomitant]
     Active Substance: GABAPENTIN
  8. PREDNISONE. [Concomitant]
     Active Substance: PREDNISONE
  9. ALBUTEROL. [Concomitant]
     Active Substance: ALBUTEROL
  10. NEXIUM [Suspect]
     Active Substance: ESOMEPRAZOLE MAGNESIUM
     Indication: GASTROOESOPHAGEAL REFLUX DISEASE
     Dosage: GENERIC
     Route: 065
     Dates: start: 20150428
  11. NORTRIPTYLINE [Concomitant]
     Active Substance: NORTRIPTYLINE
  12. CHOLESTYRAMINE. [Concomitant]
     Active Substance: CHOLESTYRAMINE
  13. TRAMADOL. [Concomitant]
     Active Substance: TRAMADOL
  14. LIDOCAINE. [Concomitant]
     Active Substance: LIDOCAINE
  15. ONDANSETRON [Concomitant]
     Active Substance: ONDANSETRON
  16. MULTIVITAMIN [Concomitant]
     Active Substance: VITAMINS
     Indication: DIETARY SUPPLEMENT PRESCRIBING ERROR
     Dates: start: 2000
  17. VITAMIN D [Concomitant]
     Active Substance: VITAMIN D NOS
     Indication: DIETARY SUPPLEMENT PRESCRIBING ERROR
     Dates: start: 2000
  18. ARANESP [Concomitant]
     Active Substance: DARBEPOETIN ALFA
  19. PROAIR HFA [Concomitant]
     Active Substance: ALBUTEROL SULFATE
  20. FAMOTIDINE. [Concomitant]
     Active Substance: FAMOTIDINE
  21. TAMOXIFEN [Concomitant]
     Active Substance: TAMOXIFEN
  22. CLONIDINE. [Concomitant]
     Active Substance: CLONIDINE
  23. CALCIUM [Concomitant]
     Active Substance: CALCIUM
  24. LEVOFLOXACIN. [Concomitant]
     Active Substance: LEVOFLOXACIN
  25. MUCINEX [Concomitant]
     Active Substance: GUAIFENESIN
  26. ACETAMINOPHEN-COD [Concomitant]
     Active Substance: ACETAMINOPHEN\CODEINE PHOSPHATE
  27. METOPROLOL TARTRATE. [Concomitant]
     Active Substance: METOPROLOL TARTRATE
  28. NEXIUM [Suspect]
     Active Substance: ESOMEPRAZOLE MAGNESIUM
     Indication: GASTROOESOPHAGEAL REFLUX DISEASE
     Route: 048
     Dates: start: 20130415, end: 20160731
  29. NEXIUM [Suspect]
     Active Substance: ESOMEPRAZOLE MAGNESIUM
     Indication: GASTROOESOPHAGEAL REFLUX DISEASE
     Route: 048
     Dates: end: 2015
  30. ASPIRIN. [Concomitant]
     Active Substance: ASPIRIN
     Indication: DIETARY SUPPLEMENT PRESCRIBING ERROR
     Dates: start: 1964
  31. NEXIUM [Suspect]
     Active Substance: ESOMEPRAZOLE MAGNESIUM
     Indication: GASTROOESOPHAGEAL REFLUX DISEASE
     Route: 065
     Dates: start: 20130713
  32. ECOTRIN [Concomitant]
     Active Substance: ASPIRIN
  33. MULTIPLE VITAMIN [Concomitant]
     Active Substance: VITAMINS

REACTIONS (5)
  - Renal failure [Not Recovered/Not Resolved]
  - Neoplasm malignant [Unknown]
  - Chronic kidney disease [Not Recovered/Not Resolved]
  - Renal cancer [Unknown]
  - Nephrogenic anaemia [Unknown]

NARRATIVE: CASE EVENT DATE: 2015
